FAERS Safety Report 7557803-4 (Version None)
Quarter: 2011Q2

REPORT INFORMATION
  Report Type: 
  Country: None (occurrence: None)
  Receive Date: 20110620
  Receipt Date: 20110613
  Transmission Date: 20111010
  Serious: Yes (Death, Other)
  Sender: FDA-Public Use
  Company Number: IT-BRISTOL-MYERS SQUIBB COMPANY-14604508

PATIENT
  Age: 75 Year
  Sex: Male

DRUGS (12)
  1. RAMIPRIL [Concomitant]
     Dates: start: 20081201, end: 20090427
  2. WARFARIN SODIUM [Suspect]
     Indication: THROMBOSIS PROPHYLAXIS
     Route: 048
     Dates: start: 20081209
  3. FUROSEMIDE [Concomitant]
     Dates: start: 20081201, end: 20090427
  4. FISH OIL [Concomitant]
     Dates: start: 20081201, end: 20090427
  5. TIOTROPIUM BROMIDE [Concomitant]
     Dates: start: 20081201, end: 20090427
  6. CARVEDILOL [Concomitant]
     Dates: start: 20081201, end: 20090427
  7. DIGOXIN [Concomitant]
     Dates: start: 20081201, end: 20090427
  8. ROSUVASTATIN CALCIUM [Concomitant]
     Dates: start: 20081201, end: 20090427
  9. PLACEBO [Suspect]
     Indication: THROMBOSIS PROPHYLAXIS
     Route: 048
     Dates: start: 20081209
  10. ESOMEPRAZOLE MAGNESIUM [Concomitant]
     Dates: start: 20081201, end: 20090427
  11. DUTASTERIDE [Concomitant]
     Dates: start: 20081201, end: 20090427
  12. AMIODARONE HCL [Concomitant]
     Dates: start: 20081201, end: 20090427

REACTIONS (3)
  - HAEMORRHAGE [None]
  - CARDIAC ARREST [None]
  - HEAD INJURY [None]
